FAERS Safety Report 7029783-1 (Version None)
Quarter: 2010Q4

REPORT INFORMATION
  Report Type: 
  Country: None (occurrence: None)
  Receive Date: 20101001
  Receipt Date: 20100920
  Transmission Date: 20110411
  Serious: Yes (Hospitalization)
  Sender: FDA-Public Use
  Company Number: 2010MA002874

PATIENT
  Age: 52 Year
  Sex: Male

DRUGS (3)
  1. SULFATRIM [Suspect]
     Dosage: CUT
     Route: 003
  2. TYLOSIN (NO PREF. NAME) [Suspect]
  3. OXYTETRACYCLINE [Concomitant]

REACTIONS (11)
  - ACANTHOSIS [None]
  - DERMATITIS CONTACT [None]
  - DRUG INEFFECTIVE [None]
  - HYPERKERATOSIS [None]
  - LICHENOID KERATOSIS [None]
  - LYMPHOCYTE STIMULATION TEST POSITIVE [None]
  - LYMPHOCYTIC INFILTRATION [None]
  - PHOTOSENSITIVITY ALLERGIC REACTION [None]
  - SKIN LESION [None]
  - SKIN TEST POSITIVE [None]
  - WRONG TECHNIQUE IN DRUG USAGE PROCESS [None]
